FAERS Safety Report 18758661 (Version 1)
Quarter: 2021Q1

REPORT INFORMATION
  Report Type: Spontaneous
  Country: FR (occurrence: FR)
  Receive Date: 20210120
  Receipt Date: 20210120
  Transmission Date: 20210419
  Serious: Yes (Hospitalization)
  Sender: FDA-Public Use
  Company Number: FR-SUN PHARMACEUTICAL INDUSTRIES LTD-2021RR-275528

PATIENT
  Age: 60 Year
  Sex: Female
  Weight: 52.2 kg

DRUGS (6)
  1. ZOPICLONE ARROW 7,5 MG, COMPRIME PELLICULE SECABLE [Suspect]
     Active Substance: ZOPICLONE
     Indication: INSOMNIA
     Dosage: 1 DOSAGE FORM, DAILY
     Route: 048
     Dates: start: 20200507
  2. QUETIAPINE. [Suspect]
     Active Substance: QUETIAPINE
     Indication: BIPOLAR DISORDER
     Dosage: 600 MILLIGRAM, DAILY
     Route: 048
     Dates: start: 20200721, end: 20201217
  3. SERESTA (OXAZEPAM) [Suspect]
     Active Substance: OXAZEPAM
     Indication: DEPRESSION
     Dosage: 3 DOSAGE FORM, DAILY
     Route: 048
     Dates: start: 20200616
  4. SULFARLEM S 25 MG, COMPRIME ENROBE [Suspect]
     Active Substance: ANETHOLTRITHION
     Indication: BIPOLAR DISORDER
     Dosage: 3 DOSAGE FORM, DAILY
     Route: 048
     Dates: start: 20200804, end: 20201215
  5. RAMIPRIL. [Suspect]
     Active Substance: RAMIPRIL
     Indication: HYPERTENSION
     Dosage: 10 MILLIGRAM, DAILY
     Route: 048
     Dates: end: 20201207
  6. KARDEGIC [Suspect]
     Active Substance: ASPIRIN DL-LYSINE
     Indication: PRODUCT USED FOR UNKNOWN INDICATION
     Dosage: 1 DOSAGE FORM, DAILY
     Route: 065

REACTIONS (2)
  - Eosinophilia [Not Recovered/Not Resolved]
  - Anaemia [Not Recovered/Not Resolved]

NARRATIVE: CASE EVENT DATE: 20201008
